FAERS Safety Report 8828643 (Version 1)
Quarter: 2012Q4

REPORT INFORMATION
  Report Type: 
  Country: US (occurrence: US)
  Receive Date: 20121005
  Receipt Date: 20121005
  Transmission Date: 20130627
  Serious: Yes (Hospitalization, Other)
  Sender: FDA-Public Use
  Company Number: US-ROXANE LABORATORIES, INC.-2012-RO-01934RO

PATIENT
  Age: 24 Year
  Sex: Male

DRUGS (2)
  1. MEFLOQUINE [Suspect]
     Indication: MALARIA PROPHYLAXIS
  2. PRIMAQUINE PHOSPHATE [Suspect]
     Indication: PROPHYLAXIS

REACTIONS (4)
  - Encephalopathy [Not Recovered/Not Resolved]
  - Vestibular disorder [Not Recovered/Not Resolved]
  - Suicidal ideation [Unknown]
  - Brain stem syndrome [Unknown]
